FAERS Safety Report 9777734 (Version 3)
Quarter: 2014Q1

REPORT INFORMATION
  Report Type: Report from Study
  Country: FR (occurrence: FR)
  Receive Date: 20131223
  Receipt Date: 20140131
  Transmission Date: 20141002
  Serious: Yes (Hospitalization, Other)
  Sender: FDA-Public Use
  Company Number: FR-ROCHE-1162181

PATIENT
  Age: 49 Year
  Sex: Female

DRUGS (5)
  1. RITUXIMAB [Suspect]
     Indication: RHEUMATOID ARTHRITIS
     Dosage: ON DAY 1 NAD DAY 15 ON 28/JUN/2007
     Route: 065
     Dates: start: 20070614
  2. RITUXIMAB [Suspect]
     Route: 065
     Dates: end: 20071105
  3. CORTANCYL [Concomitant]
     Route: 065
  4. PARACETAMOL [Concomitant]
  5. METHYLPREDNISOLONE [Concomitant]
     Route: 065

REACTIONS (13)
  - Arthritis infective [Unknown]
  - Cerebral infarction [Recovered/Resolved with Sequelae]
  - Fall [Unknown]
  - Cholelithiasis [Unknown]
  - Knee arthroplasty [Unknown]
  - Malaise [Recovered/Resolved]
  - Rectal haemorrhage [Recovered/Resolved]
  - Asthenia [Unknown]
  - Weight decreased [Unknown]
  - General physical health deterioration [Unknown]
  - Productive cough [Unknown]
  - Pruritus [Unknown]
  - Infusion related reaction [Unknown]
